FAERS Safety Report 6674368-X (Version None)
Quarter: 2010Q1

REPORT INFORMATION
  Report Type: 
  Country: None (occurrence: None)
  Receive Date: 20100329
  Receipt Date: 20090603
  Transmission Date: 20100710
  Serious: Yes (Other)
  Sender: FDA-Public Use
  Company Number: 2009199167

PATIENT
  Age: 27 Year
  Sex: Female
  Weight: 63.5 kg

DRUGS (3)
  1. GEODON [Suspect]
     Indication: BIPOLAR DISORDER
     Dosage: ORAL
     Route: 048
     Dates: start: 20090101, end: 20090101
  2. SERTRALINE HCL [Concomitant]
  3. CLONAZEPAM [Concomitant]

REACTIONS (2)
  - FLAT AFFECT [None]
  - PARKINSONISM [None]
